FAERS Safety Report 5226809-2 (Version None)
Quarter: 2007Q1

REPORT INFORMATION
  Report Type: 
  Country: None (occurrence: None)
  Receive Date: 20070130
  Receipt Date: 20061208
  Transmission Date: 20070707
  Serious: Yes (Hospitalization)
  Sender: FDA-Public Use
  Company Number: 233605

PATIENT
  Age: 61 Year
  Sex: Female

DRUGS (15)
  1. HERCEPTIN [Suspect]
     Indication: BREAST CANCER
     Dosage: Q3W, INTRAVENOUS
     Route: 042
     Dates: start: 20061002, end: 20061002
  2. LEVOTHYROXINE SODIUM [Concomitant]
  3. NEXIUM [Concomitant]
  4. IBUPROFEN [Concomitant]
  5. POTASSIUM CHLORIDE [Concomitant]
  6. MITRAZAPINE (MIRTRAZAPINE) [Concomitant]
  7. MORPHINE [Concomitant]
  8. PREDNISOLONE [Concomitant]
  9. METAMIZOLE SODIUM (DIPYRONE) [Concomitant]
  10. PREGABALIN (PREGABALIN) [Concomitant]
  11. CEFUROXIME [Concomitant]
  12. CLINDAMYCIN [Concomitant]
  13. LACRIMAL (POLYVINL ALCOHOL) [Concomitant]
  14. BEPANTHEN (DEXPANTHENOL) [Concomitant]
  15. DANAPRAROID SODIUM (DANAPRAROID SODIUM) [Concomitant]

REACTIONS (15)
  - ALANINE AMINOTRANSFERASE INCREASED [None]
  - ASPARTATE AMINOTRANSFERASE INCREASED [None]
  - BLOOD LACTATE DEHYDROGENASE INCREASED [None]
  - CSF TEST ABNORMAL [None]
  - DEPRESSION [None]
  - GAMMA-GLUTAMYLTRANSFERASE INCREASED [None]
  - HAEMATOCRIT DECREASED [None]
  - HAEMOGLOBIN DECREASED [None]
  - HEPARIN-INDUCED THROMBOCYTOPENIA [None]
  - IVTH NERVE PARESIS [None]
  - NERVE ROOT LESION [None]
  - PARAPARESIS [None]
  - PNEUMONIA BACTERIAL [None]
  - SCIATICA [None]
  - VENTRICULAR HYPERTROPHY [None]
